FAERS Safety Report 4716323-2 (Version None)
Quarter: 2005Q3

REPORT INFORMATION
  Report Type: 
  Country: None (occurrence: None)
  Receive Date: 20050711
  Receipt Date: 20040513
  Transmission Date: 20060218
  Serious: Yes (Other)
  Sender: FDA-Public Use
  Company Number: 367834

PATIENT
  Sex: Female

DRUGS (2)
  1. CELLCEPT [Suspect]
     Indication: PROPHYLAXIS AGAINST TRANSPLANT REJECTION
     Dates: start: 19980615
  2. CELLCEPT [Suspect]
     Indication: RENAL TRANSPLANT
     Dates: start: 19980615

REACTIONS (1)
  - BREAST CANCER [None]
